FAERS Safety Report 25451534 (Version 1)
Quarter: 2025Q2

REPORT INFORMATION
  Report Type: Spontaneous
  Country: AE (occurrence: None)
  Receive Date: 20250618
  Receipt Date: 20250618
  Transmission Date: 20250717
  Serious: Yes (Other)
  Sender: INCYTE
  Company Number: AE-INCYTE CORPORATION-2025IN006462

PATIENT

DRUGS (1)
  1. TAFASITAMAB [Suspect]
     Active Substance: TAFASITAMAB
     Indication: Diffuse large B-cell lymphoma

REACTIONS (3)
  - Diffuse large B-cell lymphoma [Unknown]
  - Disease progression [Unknown]
  - Drug ineffective [Unknown]
